FAERS Safety Report 8405818-6 (Version None)
Quarter: 2012Q2

REPORT INFORMATION
  Report Type: 
  Country: None (occurrence: None)
  Receive Date: 20120604
  Receipt Date: 20120529
  Transmission Date: 20120825
  Serious: No
  Sender: FDA-Public Use
  Company Number: US-PFIZER INC-2012130227

PATIENT
  Sex: Female

DRUGS (4)
  1. NEURONTIN [Suspect]
     Dosage: UNK
  2. LYRICA [Concomitant]
  3. PREMARIN [Concomitant]
     Dosage: UNK
  4. NORVASC [Concomitant]
     Dosage: UNK

REACTIONS (1)
  - SOMNOLENCE [None]
